FAERS Safety Report 16274562 (Version 4)
Quarter: 2020Q3

REPORT INFORMATION
  Report Type: Other
  Country: JP (occurrence: JP)
  Receive Date: 20190506
  Receipt Date: 20200731
  Transmission Date: 20201102
  Serious: Yes (Other)
  Sender: FDA-Public Use
  Company Number: JP-ROCHE-2309397

PATIENT

DRUGS (3)
  1. TAS?102 [Suspect]
     Active Substance: TIPIRACIL HYDROCHLORIDE\TRIFLURIDINE
     Indication: COLORECTAL CANCER METASTATIC
     Dosage: ON DAY 1?5 FOR 2 WEEKS, DOSE LEVEL 0
     Route: 048
  2. BEVACIZUMAB. [Suspect]
     Active Substance: BEVACIZUMAB
     Indication: COLORECTAL CANCER METASTATIC
     Route: 065
  3. TAS?102 [Suspect]
     Active Substance: TIPIRACIL HYDROCHLORIDE\TRIFLURIDINE
     Dosage: ON DAY 1?5 FOR 2 WEEKS, DOSE LEVEL 1
     Route: 048

REACTIONS (18)
  - Proteinuria [Unknown]
  - Decreased appetite [Unknown]
  - White blood cell count decreased [Unknown]
  - Platelet count decreased [Unknown]
  - Diarrhoea [Unknown]
  - Neutropenia [Unknown]
  - Hypertension [Unknown]
  - Nausea [Unknown]
  - Weight decreased [Unknown]
  - Anaemia [Unknown]
  - Neutrophil count decreased [Unknown]
  - Peripheral sensory neuropathy [Unknown]
  - Embolism [Unknown]
  - Pyrexia [Unknown]
  - Leukopenia [Unknown]
  - Hyperbilirubinaemia [Unknown]
  - Alanine aminotransferase increased [Unknown]
  - Blood bilirubin increased [Unknown]
